FAERS Safety Report 11116106 (Version 4)
Quarter: 2016Q1

REPORT INFORMATION
  Report Type: Spontaneous
  Country: US (occurrence: US)
  Receive Date: 20150515
  Receipt Date: 20160321
  Transmission Date: 20160525
  Serious: Yes (Life-Threatening)
  Sender: FDA-Public Use
  Company Number: US-BAYER-2015-232942

PATIENT
  Age: 32 Year
  Sex: Female
  Weight: 81.63 kg

DRUGS (1)
  1. MIRENA [Suspect]
     Active Substance: LEVONORGESTREL
     Indication: CONTRACEPTION
     Dosage: 20 MCG/24HR, CONT
     Route: 015
     Dates: start: 20091027, end: 201204

REACTIONS (15)
  - Alopecia [None]
  - Injury [None]
  - Vomiting [None]
  - Pelvic pain [None]
  - Uterine perforation [None]
  - Anhedonia [None]
  - Emotional distress [None]
  - Migraine [None]
  - Nausea [None]
  - Abdominal pain lower [None]
  - Anxiety [None]
  - Device issue [None]
  - Uterine pain [None]
  - Pain [None]
  - General physical health deterioration [None]

NARRATIVE: CASE EVENT DATE: 200912
